FAERS Safety Report 24385193 (Version 4)
Quarter: 2025Q3

REPORT INFORMATION
  Report Type: Report from Study
  Country: US (occurrence: US)
  Receive Date: 20241001
  Receipt Date: 20250801
  Transmission Date: 20251020
  Serious: No
  Sender: SUNOVION
  Company Number: US-SUMITOMO PHARMA SWITZERLAND GMBH-2024SPA003178

PATIENT

DRUGS (9)
  1. ORGOVYX [Suspect]
     Active Substance: RELUGOLIX
     Indication: Prostate cancer
     Dosage: 360 MG, SINGLE
     Route: 048
     Dates: start: 20240904
  2. ORGOVYX [Suspect]
     Active Substance: RELUGOLIX
     Dosage: 120 MG, QD
     Route: 048
     Dates: start: 20240905
  3. CIALIS [Concomitant]
     Active Substance: TADALAFIL
     Route: 065
  4. VITAMIN C [Concomitant]
     Active Substance: ASCORBIC ACID
     Route: 065
  5. DILTIAZEM [Concomitant]
     Active Substance: DILTIAZEM
     Route: 065
  6. LASIX [Concomitant]
     Active Substance: FUROSEMIDE
     Route: 065
  7. METOPROLOL SUCCINATE [Concomitant]
     Active Substance: METOPROLOL SUCCINATE
     Route: 065
  8. XARELTO [Concomitant]
     Active Substance: RIVAROXABAN
     Route: 065
  9. ZINC SULFATE [Concomitant]
     Active Substance: ZINC SULFATE
     Route: 065

REACTIONS (3)
  - Laziness [Unknown]
  - Hot flush [Unknown]
  - Fatigue [Unknown]
